FAERS Safety Report 5910280-9 (Version None)
Quarter: 2008Q4

REPORT INFORMATION
  Report Type: 
  Country: None (occurrence: None)
  Receive Date: 20081007
  Receipt Date: 20080814
  Transmission Date: 20090506
  Serious: No
  Sender: FDA-Public Use
  Company Number: A0742626A

PATIENT
  Age: 56 Year
  Sex: Female

DRUGS (6)
  1. ADVAIR DISKUS 100/50 [Suspect]
     Indication: MULTIPLE ALLERGIES
     Dosage: 2SPR PER DAY
     Route: 055
     Dates: start: 20080716
  2. SINGULAIR [Concomitant]
  3. NASONEX [Concomitant]
  4. ASTELIN [Concomitant]
  5. ATENOLOL [Concomitant]
  6. ARMOUR THYROID [Concomitant]

REACTIONS (3)
  - ABDOMINAL DISCOMFORT [None]
  - ABDOMINAL PAIN UPPER [None]
  - DIARRHOEA [None]
